FAERS Safety Report 4472970-7 (Version None)
Quarter: 2004Q4

REPORT INFORMATION
  Report Type: 
  Country: None (occurrence: None)
  Receive Date: 20041012
  Receipt Date: 20041012
  Transmission Date: 20050328
  Serious: No
  Sender: FDA-Public Use
  Company Number: None

PATIENT

DRUGS (1)
  1. CORDIS CYPHER SIROLIMUS-ELUTING CORONARY STENT [Suspect]
     Dates: start: 20040701

REACTIONS (9)
  - BEDRIDDEN [None]
  - CEREBROVASCULAR ACCIDENT [None]
  - CORONARY ARTERY SURGERY [None]
  - DEVICE FAILURE [None]
  - EMOTIONAL DISTRESS [None]
  - GANGRENE [None]
  - IMMOBILE [None]
  - PAIN [None]
  - PHARMACEUTICAL PRODUCT COMPLAINT [None]
